FAERS Safety Report 13239489 (Version 1)
Quarter: 2017Q1

REPORT INFORMATION
  Report Type: Spontaneous
  Country: US (occurrence: US)
  Receive Date: 20170216
  Receipt Date: 20170216
  Transmission Date: 20170428
  Serious: No
  Sender: FDA-Public Use
  Company Number: US-RELYPSA-RLY2016003307

PATIENT
  Age: 63 Year
  Sex: Male

DRUGS (1)
  1. VELTASSA [Suspect]
     Active Substance: PATIROMER
     Indication: BLOOD PHOSPHORUS INCREASED
     Dosage: 8.4 G, QOD
     Route: 048
     Dates: start: 201609, end: 20161023

REACTIONS (5)
  - Inappropriate schedule of drug administration [Recovered/Resolved]
  - Gastrointestinal disorder [Unknown]
  - Decreased appetite [Unknown]
  - Constipation [Unknown]
  - Off label use [Recovered/Resolved]

NARRATIVE: CASE EVENT DATE: 201609
